FAERS Safety Report 14240762 (Version 3)
Quarter: 2019Q3

REPORT INFORMATION
  Report Type: Spontaneous
  Country: PT (occurrence: PT)
  Receive Date: 20171130
  Receipt Date: 20190809
  Transmission Date: 20191004
  Serious: Yes (Life-Threatening, Hospitalization, Other)
  Sender: FDA-Public Use
  Company Number: PT-MYLANLABS-2017M1075259

PATIENT
  Age: 46 Year
  Sex: Female

DRUGS (6)
  1. EPINEPHRINE. [Suspect]
     Active Substance: EPINEPHRINE
     Indication: ANGIOEDEMA
  2. PERINDOPRIL [Suspect]
     Active Substance: PERINDOPRIL
     Indication: ANGIOEDEMA
     Dosage: 10 MG/DAY FOR ABOUT ONE YEAR
     Route: 065
  3. PERINDOPRIL [Suspect]
     Active Substance: PERINDOPRIL
     Indication: HYPERTENSION
  4. HYDROCORTISONE. [Concomitant]
     Active Substance: HYDROCORTISONE
     Indication: ANGIOEDEMA
     Dosage: 200 MILLIGRAM
     Route: 042
  5. EPINEPHRINE. [Suspect]
     Active Substance: EPINEPHRINE
     Indication: ANAPHYLAXIS TREATMENT
     Dosage: 1 MILLIGRAM
     Route: 042
  6. CLEMASTINE [Concomitant]
     Active Substance: CLEMASTINE
     Indication: ANGIOEDEMA
     Dosage: 2 MILLIGRAM
     Route: 042

REACTIONS (13)
  - Angioedema [Recovered/Resolved]
  - Hypotension [Recovered/Resolved]
  - Myocardial infarction [Recovered/Resolved]
  - Nausea [Recovered/Resolved]
  - Cardiomyopathy [Recovered/Resolved]
  - Hypokinesia [Recovered/Resolved]
  - Sinus tachycardia [Recovered/Resolved]
  - Chest pain [Recovered/Resolved]
  - Incorrect route of product administration [Recovered/Resolved]
  - Acute myocardial infarction [Recovering/Resolving]
  - Circumstance or information capable of leading to medication error [Recovering/Resolving]
  - Arteriospasm coronary [Recovering/Resolving]
  - Tachypnoea [Recovered/Resolved]
